FAERS Safety Report 9337089 (Version 1)
Quarter: 2013Q2

REPORT INFORMATION
  Report Type: Spontaneous
  Country: US (occurrence: US)
  Receive Date: 20130607
  Receipt Date: 20130607
  Transmission Date: 20140414
  Serious: No
  Sender: FDA-Public Use
  Company Number: US-009507513-1306USA001385

PATIENT
  Sex: Male

DRUGS (2)
  1. MIRALAX [Suspect]
     Indication: CONSTIPATION
     Dosage: 34 G, ONCE
     Route: 048
     Dates: start: 20130526
  2. MIRALAX [Suspect]
     Dosage: 8.5 G, ONCE
     Route: 048
     Dates: start: 20130526

REACTIONS (2)
  - Abnormal faeces [Recovering/Resolving]
  - Overdose [Recovering/Resolving]
